FAERS Safety Report 10420989 (Version 5)
Quarter: 2015Q2

REPORT INFORMATION
  Report Type: Report from Study
  Country: JP (occurrence: None)
  Receive Date: 20140828
  Receipt Date: 20150514
  Transmission Date: 20150821
  Serious: Yes (Hospitalization)
  Sender: FDA-Public Use
  Company Number: 2014JP007292

PATIENT
  Age: 50 Year
  Sex: Male

DRUGS (11)
  1. REGNITE (GABAPENTIN ENACARBIL) TABLET, 300MG [Suspect]
     Active Substance: GABAPENTIN ENACARBIL
     Indication: RESTLESS LEGS SYNDROME
     Dosage: 300 MG, ONCE DAILY, ORAL
     Route: 048
     Dates: start: 20130809, end: 20130827
  2. AKINETON [Suspect]
     Active Substance: BIPERIDEN HYDROCHLORIDE
     Indication: AKATHISIA
     Route: 048
     Dates: end: 20130827
  3. LENDORMIN (BROTIZOLAM) [Concomitant]
  4. SEROQUEL [Suspect]
     Active Substance: QUETIAPINE FUMARATE
     Indication: DELIRIUM
     Route: 048
     Dates: start: 2013, end: 20131226
  5. RISPERDAL [Suspect]
     Active Substance: RISPERIDONE
     Indication: DELIRIUM
     Dosage: 1 MG, ONCE DAILY, ORAL
     Route: 048
     Dates: start: 20130830, end: 20130902
  6. PLATOSIN [Suspect]
     Active Substance: CISPLATIN
     Indication: CHEMOTHERAPY
     Dosage: 92 MG, ONCE DAILY
     Dates: start: 20130707, end: 20130708
  7. 5-FU /00098801/ (FLUOROURACIL) [Suspect]
     Active Substance: FLUOROURACIL
     Indication: CHEMOTHERAPY
     Dosage: 1472 MG, ONCE DAILY
     Dates: start: 20130702, end: 20130706
  8. CLONAZEPAM (CLONAZEPAM) [Suspect]
     Active Substance: CLONAZEPAM
     Indication: RESTLESS LEGS SYNDROME
     Route: 048
     Dates: start: 20130806, end: 20130827
  9. MYSLEE (ZOLPIDEM TARTRATE) TABLET [Suspect]
     Active Substance: ZOLPIDEM TARTRATE
     Indication: INSOMNIA
     Dosage: 10 MG, ONCE DAILY, ORAL
     Route: 048
     Dates: start: 20130906, end: 20130930
  10. 5-FU /00098801/ (FLUOROURACIL) [Suspect]
     Active Substance: FLUOROURACIL
     Indication: NASOPHARYNGEAL CANCER
     Dosage: 1472 MG, ONCE DAILY
     Dates: start: 20130702, end: 20130706
  11. PLATOSIN [Suspect]
     Active Substance: CISPLATIN
     Indication: NASOPHARYNGEAL CANCER
     Dosage: 92 MG, ONCE DAILY
     Dates: start: 20130707, end: 20130708

REACTIONS (9)
  - Off label use [None]
  - Condition aggravated [None]
  - Akathisia [None]
  - Disorientation [None]
  - Insomnia [None]
  - Renal impairment [None]
  - Delirium [None]
  - Sedation [None]
  - Restless legs syndrome [None]

NARRATIVE: CASE EVENT DATE: 20130826
